FAERS Safety Report 6841096-7 (Version None)
Quarter: 2010Q3

REPORT INFORMATION
  Report Type: 
  Country: None (occurrence: None)
  Receive Date: 20100714
  Receipt Date: 20070626
  Transmission Date: 20110219
  Serious: No
  Sender: FDA-Public Use
  Company Number: US-PFIZER INC-2007053550

PATIENT
  Sex: Female
  Weight: 69.545 kg

DRUGS (8)
  1. CHANTIX [Suspect]
     Indication: SMOKING CESSATION THERAPY
     Dates: start: 20070604
  2. NEURONTIN [Concomitant]
  3. ZOLOFT [Concomitant]
  4. MONOPRIL [Concomitant]
  5. OMEPRAZOLE [Concomitant]
  6. DONNATAL [Concomitant]
  7. ZETIA [Concomitant]
  8. FLEXERIL [Concomitant]

REACTIONS (2)
  - CONSTIPATION [None]
  - WEIGHT INCREASED [None]
